FAERS Safety Report 10995258 (Version 1)
Quarter: 2015Q2

REPORT INFORMATION
  Report Type: Spontaneous
  Country: US (occurrence: US)
  Receive Date: 20150407
  Receipt Date: 20150407
  Transmission Date: 20150821
  Serious: No
  Sender: FDA-Public Use
  Company Number: US-GILEAD-2015-0146583

PATIENT
  Age: 59 Year
  Sex: Female

DRUGS (1)
  1. HARVONI [Suspect]
     Active Substance: LEDIPASVIR\SOFOSBUVIR
     Indication: PRODUCT USED FOR UNKNOWN INDICATION
     Dosage: 1 DF, QD
     Dates: start: 20150109

REACTIONS (6)
  - Diarrhoea [Unknown]
  - Fatigue [Unknown]
  - Arthralgia [Unknown]
  - Vomiting [Unknown]
  - Hypoaesthesia [Unknown]
  - Nausea [Unknown]

NARRATIVE: CASE EVENT DATE: 201503
